FAERS Safety Report 8474769-3 (Version None)
Quarter: 2012Q2

REPORT INFORMATION
  Report Type: 
  Country: None (occurrence: None)
  Receive Date: 20120628
  Receipt Date: 20120622
  Transmission Date: 20120825
  Serious: Yes (Hospitalization, Other)
  Sender: FDA-Public Use
  Company Number: BR-PFIZER INC-2012151853

PATIENT
  Age: 63 Year
  Sex: Male

DRUGS (3)
  1. IBUPROFEN [Concomitant]
     Indication: PAIN
     Dosage: UNK
  2. SUTENT [Suspect]
     Indication: RENAL CANCER
     Dosage: 50 MG, 1X/DAY (FIFTH CYCLE)
     Route: 048
     Dates: start: 20111205
  3. MORPHINE [Suspect]
     Indication: PAIN
     Dosage: UNK

REACTIONS (5)
  - CONVULSION [None]
  - COMA [None]
  - DISEASE COMPLICATION [None]
  - VOMITING [None]
  - ASTHENIA [None]
